FAERS Safety Report 7705949-X (Version None)
Quarter: 2011Q3

REPORT INFORMATION
  Report Type: 
  Country: None (occurrence: None)
  Receive Date: 20110824
  Receipt Date: 20110817
  Transmission Date: 20111222
  Serious: Yes (Other)
  Sender: FDA-Public Use
  Company Number: PHEH2011US01802

PATIENT
  Age: 72 Year
  Sex: Female

DRUGS (10)
  1. LEVOXYL [Concomitant]
     Indication: MALAISE
     Dosage: 125 MG, DAILY
     Dates: start: 20020701
  2. MODAFINIL [Concomitant]
     Indication: FATIGUE
     Dosage: 200 MG, DAILY
     Dates: start: 20000713
  3. BACLOFEN [Concomitant]
     Indication: MOBILITY DECREASED
     Dosage: 10 MG, ALL THE TIME 24/7
     Dates: start: 19891003
  4. OXYBUTYNIN [Concomitant]
     Indication: BLADDER DISORDER
     Dosage: 5 MG, DAILY
     Dates: start: 20000203
  5. STOOL SOFTENER [Concomitant]
     Indication: MALAISE
     Dosage: UNK UKN, UNK
     Dates: start: 20080613
  6. REBIF [Concomitant]
     Indication: MULTIPLE SCLEROSIS
     Dosage: 44 UG, UNK
     Dates: start: 20040402
  7. INTERFERON BETA-1B [Suspect]
     Indication: MULTIPLE SCLEROSIS
     Dosage: UNK UKN, UNK
     Route: 058
  8. GLATIRAMER ACETATE [Concomitant]
     Indication: MULTIPLE SCLEROSIS
     Dosage: UNK UKN, UNK
  9. INTERFERON BETA-1A                 /00596808/ [Concomitant]
     Indication: MULTIPLE SCLEROSIS
     Dosage: 44 MCG/0.5 ML
     Dates: start: 20030524
  10. CLONAZEPAM [Concomitant]
     Indication: RESTLESS LEGS SYNDROME
     Dosage: 2 MG, DAILY
     Dates: start: 19900102

REACTIONS (2)
  - DEPRESSION [None]
  - DEPRESSED MOOD [None]
